FAERS Safety Report 10555860 (Version 2)
Quarter: 2014Q4

REPORT INFORMATION
  Report Type: Spontaneous
  Country: US (occurrence: US)
  Receive Date: 20141030
  Receipt Date: 20141212
  Transmission Date: 20150529
  Serious: No
  Sender: FDA-Public Use
  Company Number: US-ELI_LILLY_AND_COMPANY-US201410010846

PATIENT
  Age: 84 Year
  Sex: Female

DRUGS (4)
  1. FORTEO [Suspect]
     Active Substance: TERIPARATIDE
     Indication: OSTEOPOROSIS
     Dosage: UNK, 3/W
     Route: 065
     Dates: start: 20140807
  2. TOPROL XL [Concomitant]
     Active Substance: METOPROLOL SUCCINATE
  3. AZOR                               /00595201/ [Concomitant]
  4. FORTEO [Suspect]
     Active Substance: TERIPARATIDE
     Dosage: UNK, 5/W
     Route: 065
     Dates: start: 20141020, end: 20141114

REACTIONS (2)
  - Blood pressure increased [Not Recovered/Not Resolved]
  - Drug prescribing error [Unknown]

NARRATIVE: CASE EVENT DATE: 20140807
